FAERS Safety Report 6249935-8 (Version None)
Quarter: 2009Q2

REPORT INFORMATION
  Report Type: 
  Country: None (occurrence: None)
  Receive Date: 20090625
  Receipt Date: 20090619
  Transmission Date: 20091009
  Serious: Yes (Death)
  Sender: FDA-Public Use
  Company Number: JHP200900200

PATIENT
  Age: 63 Year
  Sex: Male

DRUGS (1)
  1. KETALAR [Suspect]
     Indication: GENERAL ANAESTHESIA
     Dates: start: 20090601, end: 20090601

REACTIONS (2)
  - IDIOSYNCRATIC DRUG REACTION [None]
  - NON-CARDIOGENIC PULMONARY OEDEMA [None]
